FAERS Safety Report 14439677 (Version 1)
Quarter: 2018Q1

REPORT INFORMATION
  Report Type: Spontaneous
  Country: JP (occurrence: JP)
  Receive Date: 20180125
  Receipt Date: 20180125
  Transmission Date: 20180509
  Serious: Yes (Hospitalization)
  Sender: FDA-Public Use
  Company Number: JP-JNJFOC-20180128269

PATIENT
  Age: 52 Year
  Sex: Female
  Weight: 60 kg

DRUGS (14)
  1. YONDELIS [Suspect]
     Active Substance: TRABECTEDIN
     Indication: UTERINE LEIOMYOSARCOMA
     Dosage: 75% DOSE
     Route: 042
     Dates: start: 20170730
  2. TAZOPIPE [Concomitant]
     Active Substance: PIPERACILLIN SODIUM\TAZOBACTAM SODIUM
     Route: 042
     Dates: start: 20170604, end: 20170606
  3. SOLACET D [Concomitant]
     Route: 041
     Dates: start: 20170604, end: 20170606
  4. OMEPRAZOLE SODIUM [Concomitant]
     Active Substance: OMEPRAZOLE SODIUM
     Route: 042
     Dates: start: 20170603, end: 20170606
  5. NEORESTAR [Concomitant]
     Route: 065
     Dates: start: 20170606, end: 20170606
  6. YONDELIS [Suspect]
     Active Substance: TRABECTEDIN
     Indication: UTERINE LEIOMYOSARCOMA
     Dosage: 50% DOSE
     Route: 042
     Dates: start: 20170705
  7. DEXART [Concomitant]
     Active Substance: DEXAMETHASONE SODIUM PHOSPHATE
     Route: 042
     Dates: start: 20170524, end: 20170524
  8. SEISHOKU [Concomitant]
     Active Substance: SODIUM CHLORIDE
     Route: 041
     Dates: start: 20170603, end: 20170606
  9. FILGRASTIM [Concomitant]
     Active Substance: FILGRASTIM
     Route: 065
     Dates: start: 20170603, end: 20170606
  10. YONDELIS [Suspect]
     Active Substance: TRABECTEDIN
     Indication: UTERINE LEIOMYOSARCOMA
     Dosage: 24-HOUR INFUSION
     Route: 042
     Dates: start: 20170425, end: 20170524
  11. EMEND [Concomitant]
     Active Substance: APREPITANT
     Route: 048
     Dates: start: 20170524, end: 20170526
  12. GRANISETRON HYDROCHLORIDE. [Concomitant]
     Active Substance: GRANISETRON HYDROCHLORIDE
     Route: 042
     Dates: start: 20170524, end: 20170524
  13. POTASSIUM GLUCONATE [Concomitant]
     Active Substance: POTASSIUM GLUCONATE
     Route: 048
     Dates: start: 20170606, end: 20170607
  14. FAMOTIDINE. [Concomitant]
     Active Substance: FAMOTIDINE
     Route: 042
     Dates: start: 20170606, end: 20170606

REACTIONS (6)
  - Nausea [Recovered/Resolved]
  - Neutrophil count decreased [Unknown]
  - Hypophosphataemia [Unknown]
  - Rhabdomyolysis [Recovered/Resolved]
  - Hypokalaemia [Unknown]
  - Platelet count decreased [Unknown]

NARRATIVE: CASE EVENT DATE: 20170425
